FAERS Safety Report 11636578 (Version 3)
Quarter: 2015Q4

REPORT INFORMATION
  Report Type: Spontaneous
  Country: DE (occurrence: DE)
  Receive Date: 20151016
  Receipt Date: 20151201
  Transmission Date: 20160304
  Serious: Yes (Hospitalization)
  Sender: FDA-Public Use
  Company Number: DE-BIOGENIDEC-2015BI138429

PATIENT
  Age: 59 Year
  Sex: Female

DRUGS (2)
  1. LYRICA [Concomitant]
     Active Substance: PREGABALIN
     Indication: DYSAESTHESIA
     Dates: start: 201505
  2. PLEGRIDY [Suspect]
     Active Substance: PEGINTERFERON BETA-1A
     Indication: PRODUCT USED FOR UNKNOWN INDICATION
     Dates: start: 20150813, end: 20150915

REACTIONS (9)
  - Nausea [Unknown]
  - Vomiting [Unknown]
  - Flank pain [Recovered/Resolved]
  - Prothrombin time prolonged [Not Recovered/Not Resolved]
  - Withdrawal bleed [Unknown]
  - Uterine haemorrhage [Recovered/Resolved]
  - General physical health deterioration [Unknown]
  - Platelet count decreased [Not Recovered/Not Resolved]
  - Hepatotoxicity [Not Recovered/Not Resolved]

NARRATIVE: CASE EVENT DATE: 2015
